FAERS Safety Report 5022789-3 (Version None)
Quarter: 2006Q2

REPORT INFORMATION
  Report Type: 
  Country: None (occurrence: None)
  Receive Date: 20060426
  Receipt Date: 20060127
  Transmission Date: 20061013
  Serious: Yes (Other)
  Sender: FDA-Public Use
  Company Number: 2005155692

PATIENT
  Sex: Female

DRUGS (3)
  1. LYRICA [Suspect]
     Indication: BLADDER PAIN
     Dosage: 3 IN 1 D
     Dates: start: 20050101, end: 20050101
  2. LYRICA [Suspect]
     Indication: MUSCLE SPASMS
     Dosage: 3 IN 1 D
     Dates: start: 20050101, end: 20050101
  3. KLONOPIN [Concomitant]

REACTIONS (4)
  - DIFFICULTY IN WALKING [None]
  - DISTURBANCE IN ATTENTION [None]
  - DIZZINESS [None]
  - NAUSEA [None]
